FAERS Safety Report 5572359-3 (Version None)
Quarter: 2007Q4

REPORT INFORMATION
  Report Type: 
  Country: None (occurrence: None)
  Receive Date: 20071219
  Receipt Date: 20070323
  Transmission Date: 20080405
  Serious: Yes (Life-Threatening)
  Sender: FDA-Public Use
  Company Number: 64873

PATIENT
  Age: 17 Year
  Sex: Male

DRUGS (3)
  1. IBUPROFEN [Suspect]
     Indication: LIP SWELLING
     Dosage: 400MG/ ORAL
     Route: 048
     Dates: start: 20070220, end: 20070307
  2. IBUPROFEN [Suspect]
     Indication: PAIN
     Dosage: 400MG/ ORAL
     Route: 048
     Dates: start: 20070220, end: 20070307
  3. HEDEX (IBUPROFEN AND PARACETAMOL) [Concomitant]

REACTIONS (1)
  - DUODENAL ULCER PERFORATION [None]
